FAERS Safety Report 12930218 (Version 1)
Quarter: 2016Q4

REPORT INFORMATION
  Report Type: Spontaneous
  Country: IT (occurrence: IT)
  Receive Date: 20161110
  Receipt Date: 20161110
  Transmission Date: 20170207
  Serious: Yes (Other)
  Sender: FDA-Public Use
  Company Number: IT-B.I. PHARMACEUTICALS,INC./RIDGEFIELD-2016-BI-076086

PATIENT
  Age: 60 Year
  Sex: Male

DRUGS (3)
  1. ATROPINE. [Suspect]
     Active Substance: ATROPINE
     Indication: STRESS ECHOCARDIOGRAM
     Route: 065
  2. AMINOPHYLLINE. [Suspect]
     Active Substance: AMINOPHYLLINE
     Indication: STRESS ECHOCARDIOGRAM
     Route: 065
  3. PERSANTIN [Suspect]
     Active Substance: DIPYRIDAMOLE
     Indication: STRESS ECHOCARDIOGRAM
     Dosage: 2 DOSES (DOSE: 0.56MG/KG AND 0.28 MG/KG)
     Route: 065

REACTIONS (4)
  - Chest discomfort [Recovered/Resolved]
  - Electrocardiogram ST segment depression [Recovered/Resolved]
  - Angina pectoris [Recovered/Resolved]
  - Electrocardiogram T wave inversion [Recovered/Resolved]
